FAERS Safety Report 24388602 (Version 2)
Quarter: 2024Q4

REPORT INFORMATION
  Report Type: Report from Study
  Country: JP (occurrence: JP)
  Receive Date: 20241002
  Receipt Date: 20241112
  Transmission Date: 20250115
  Serious: Yes (Other)
  Sender: ALEXION PHARMACEUTICALS
  Company Number: JP-ALXN-A202310834

PATIENT
  Age: 8 Year

DRUGS (16)
  1. STRENSIQ [Suspect]
     Active Substance: ASFOTASE ALFA
     Indication: Hypophosphatasia
     Dosage: 2 MILLIGRAM/KILOGRAM, TIW
  2. STRENSIQ [Suspect]
     Active Substance: ASFOTASE ALFA
     Dosage: 2 MILLIGRAM/KILOGRAM, TIW
  3. STRENSIQ [Suspect]
     Active Substance: ASFOTASE ALFA
     Dosage: 2 MILLIGRAM/KILOGRAM, TIW
  4. STRENSIQ [Suspect]
     Active Substance: ASFOTASE ALFA
     Dosage: 2 MILLIGRAM/KILOGRAM, TIW
  5. STRENSIQ [Suspect]
     Active Substance: ASFOTASE ALFA
     Dosage: 3 MILLIGRAM/KILOGRAM, TIW
  6. STRENSIQ [Suspect]
     Active Substance: ASFOTASE ALFA
     Dosage: 3 MILLIGRAM/KILOGRAM, TIW
  7. STRENSIQ [Suspect]
     Active Substance: ASFOTASE ALFA
     Dosage: 3 MILLIGRAM/KILOGRAM, TIW
  8. STRENSIQ [Suspect]
     Active Substance: ASFOTASE ALFA
     Dosage: 3 MILLIGRAM/KILOGRAM, TIW
  9. STRENSIQ [Suspect]
     Active Substance: ASFOTASE ALFA
     Dosage: 2 MILLIGRAM/KILOGRAM, TIW
  10. STRENSIQ [Suspect]
     Active Substance: ASFOTASE ALFA
     Dosage: 2 MILLIGRAM/KILOGRAM, TIW
  11. STRENSIQ [Suspect]
     Active Substance: ASFOTASE ALFA
     Dosage: 2 MILLIGRAM/KILOGRAM, TIW
  12. STRENSIQ [Suspect]
     Active Substance: ASFOTASE ALFA
     Dosage: 2 MILLIGRAM/KILOGRAM, TIW
  13. EMLA [Concomitant]
     Active Substance: LIDOCAINE\PRILOCAINE
     Indication: Prophylaxis
     Dosage: 1 DOSAGE FORM, QD
  14. EMLA [Concomitant]
     Active Substance: LIDOCAINE\PRILOCAINE
     Dosage: 1 DOSAGE FORM, QD
  15. EMLA [Concomitant]
     Active Substance: LIDOCAINE\PRILOCAINE
     Dosage: 1 DOSAGE FORM, QD
  16. EMLA [Concomitant]
     Active Substance: LIDOCAINE\PRILOCAINE
     Dosage: 1 DOSAGE FORM, QD

REACTIONS (7)
  - Febrile convulsion [Recovered/Resolved]
  - Nasopharyngitis [Recovered/Resolved]
  - Tooth impacted [Recovered/Resolved]
  - Neutralising antibodies positive [Recovered/Resolved]
  - COVID-19 [Recovered/Resolved]
  - Seasonal allergy [Recovered/Resolved]
  - Dermatitis [Recovered/Resolved]
